FAERS Safety Report 4834575-5 (Version None)
Quarter: 2005Q4

REPORT INFORMATION
  Report Type: 
  Country: None (occurrence: None)
  Receive Date: 20051122
  Receipt Date: 20050411
  Transmission Date: 20060501
  Serious: No
  Sender: FDA-Public Use
  Company Number: US-BRISTOL-MYERS SQUIBB COMPANY-12928214

PATIENT
  Age: 62 Year
  Sex: Female

DRUGS (8)
  1. PRAVACHOL [Suspect]
     Indication: BLOOD CHOLESTEROL INCREASED
  2. ZETIA [Concomitant]
  3. ZOLOFT [Concomitant]
  4. FLAXSEED OIL [Concomitant]
  5. FISH OIL [Concomitant]
  6. MULTI-VITAMIN [Concomitant]
  7. PREVACID [Concomitant]
  8. ASPIRIN [Concomitant]
     Dosage: 1 DOSAGE FORM = ONE QUARTER OF A 325MG TABLET

REACTIONS (2)
  - ALOPECIA [None]
  - POLYMYALGIA [None]
